FAERS Safety Report 18840082 (Version 2)
Quarter: 2021Q4

REPORT INFORMATION
  Report Type: Report from Study
  Country: None (occurrence: PR)
  Receive Date: 20210204
  Receipt Date: 20211007
  Transmission Date: 20220304
  Serious: Yes (Other)
  Sender: FDA-Public Use
  Company Number: PR-ABBVIE-21K-131-3742084-00

PATIENT
  Age: 58 Year
  Sex: Female
  Weight: 90.8 kg

DRUGS (5)
  1. HUMIRA [Suspect]
     Active Substance: ADALIMUMAB
     Indication: Uveitis
     Route: 058
     Dates: start: 20121108
  2. HUMIRA [Suspect]
     Active Substance: ADALIMUMAB
     Indication: Uveitis
     Route: 058
  3. ELASOMERAN [Concomitant]
     Active Substance: ELASOMERAN
     Indication: COVID-19 immunisation
     Route: 030
     Dates: start: 20210315, end: 20210315
  4. ELASOMERAN [Concomitant]
     Active Substance: ELASOMERAN
     Route: 030
     Dates: start: 20210412, end: 20210412
  5. ELASOMERAN [Concomitant]
     Active Substance: ELASOMERAN
     Route: 030
     Dates: start: 20210826, end: 20210826

REACTIONS (3)
  - Macular hole [Recovered/Resolved]
  - Vitrectomy [Not Recovered/Not Resolved]
  - Visual impairment [Unknown]

NARRATIVE: CASE EVENT DATE: 20210120
